FAERS Safety Report 9258526 (Version 1)
Quarter: 2013Q2

REPORT INFORMATION
  Report Type: Spontaneous
  Country: US (occurrence: None)
  Receive Date: 20130425
  Receipt Date: 20130425
  Transmission Date: 20140414
  Serious: Yes (Life-Threatening, Disabling)
  Sender: FDA-Public Use
  Company Number: None

PATIENT
  Age: 64 Year
  Sex: Female
  Weight: 105.24 kg

DRUGS (1)
  1. ZITHROMAX Z-PACK [Suspect]
     Indication: RESPIRATORY TRACT INFECTION
     Dosage: 250 MG 2 TABS 1ST DAY, 1 TAB DAILY X 4, PO
     Dates: start: 20120418, end: 20120423

REACTIONS (4)
  - Dyspnoea [None]
  - Fatigue [None]
  - Hypertension [None]
  - Heart rate irregular [None]
